FAERS Safety Report 4769002-X (Version None)
Quarter: 2005Q3

REPORT INFORMATION
  Report Type: 
  Country: None (occurrence: None)
  Receive Date: 20050913
  Receipt Date: 20050902
  Transmission Date: 20060218
  Serious: Yes (Other)
  Sender: FDA-Public Use
  Company Number: 2005123563

PATIENT
  Sex: Male

DRUGS (2)
  1. MEDROL [Suspect]
     Indication: ILL-DEFINED DISORDER
     Dosage: 60 MG (16 MG, 1 IN 1 D), ORAL
     Route: 048
  2. ACETYLCHOLINE (ACETYLCHOLINE) [Concomitant]

REACTIONS (1)
  - GASTRIC HAEMORRHAGE [None]
